FAERS Safety Report 4285777-0 (Version None)
Quarter: 2004Q1

REPORT INFORMATION
  Report Type: 
  Country: None (occurrence: None)
  Receive Date: 20040203
  Receipt Date: 20021219
  Transmission Date: 20041129
  Serious: Yes (Hospitalization)
  Sender: FDA-Public Use
  Company Number: 2004-06592

PATIENT
  Age: 56 Year
  Sex: Male
  Weight: 56 kg

DRUGS (2)
  1. VIREAD [Suspect]
     Indication: HIV INFECTION
     Dosage: 300 MG QD PO
     Route: 048
     Dates: start: 20021102, end: 20021109
  2. VIRACEPT [Suspect]
     Indication: HIV INFECTION
     Dates: start: 20021102, end: 20021109

REACTIONS (3)
  - DERMATITIS EXFOLIATIVE [None]
  - LYMPHADENOPATHY [None]
  - PYREXIA [None]
